FAERS Safety Report 6982746-4 (Version None)
Quarter: 2010Q3

REPORT INFORMATION
  Report Type: 
  Country: None (occurrence: None)
  Receive Date: 20100914
  Receipt Date: 20100311
  Transmission Date: 20110219
  Serious: No
  Sender: FDA-Public Use
  Company Number: US-PFIZER INC-2010032462

PATIENT
  Sex: Female
  Weight: 78.912 kg

DRUGS (5)
  1. LYRICA [Suspect]
     Indication: PERIPHERAL NERVE INJURY
     Dosage: UNK
     Route: 048
     Dates: start: 20090401, end: 20090101
  2. LYRICA [Suspect]
     Indication: NEUROPATHY PERIPHERAL
  3. PLAVIX [Concomitant]
     Indication: CORONARY ARTERIAL STENT INSERTION
     Dosage: UNK MG, 1X/DAY
     Route: 048
  4. ATENOLOL [Concomitant]
     Indication: CORONARY ARTERIAL STENT INSERTION
     Dosage: 75 MG, 1X/DAY
  5. ULTRACET [Concomitant]
     Indication: PAIN
     Dosage: 500 MG, 3X/DAY
     Route: 048

REACTIONS (2)
  - MYALGIA [None]
  - OEDEMA PERIPHERAL [None]
